FAERS Safety Report 5226895-X (Version None)
Quarter: 2007Q1

REPORT INFORMATION
  Report Type: 
  Country: None (occurrence: None)
  Receive Date: 20070130
  Receipt Date: 20070115
  Transmission Date: 20070707
  Serious: Yes (Life-Threatening, Hospitalization, Other)
  Sender: FDA-Public Use
  Company Number: 06-000877

PATIENT
  Age: 29 Year
  Sex: Female

DRUGS (2)
  1. TACLONEX [Suspect]
     Indication: PSORIASIS
     Dosage: 0.005/0.64% 1 APPLICATION QD, TOPICAL
     Route: 061
     Dates: start: 20060101, end: 20060601
  2. DOXYCYCLINE [Concomitant]

REACTIONS (9)
  - ACTH STIMULATION TEST ABNORMAL [None]
  - ADRENAL SUPPRESSION [None]
  - ADRENOCORTICAL INSUFFICIENCY ACUTE [None]
  - CIRCULATORY COLLAPSE [None]
  - DIARRHOEA [None]
  - FALL [None]
  - HEADACHE [None]
  - PHOTOPHOBIA [None]
  - VOMITING [None]
